FAERS Safety Report 4667458-4 (Version None)
Quarter: 2005Q2

REPORT INFORMATION
  Report Type: 
  Country: None (occurrence: None)
  Receive Date: 20050520
  Receipt Date: 20050221
  Transmission Date: 20051028
  Serious: Yes (Other)
  Sender: FDA-Public Use
  Company Number: AU-BOEHRINGER INGELHEIM PHARMMACEUTICALS, INC.-2005-BP-02673AU

PATIENT
  Sex: Male

DRUGS (1)
  1. MOBIC [Suspect]
     Route: 048

REACTIONS (1)
  - CEREBROVASCULAR ACCIDENT [None]
